FAERS Safety Report 24363773 (Version 2)
Quarter: 2024Q4

REPORT INFORMATION
  Report Type: Report from Study
  Country: JP (occurrence: JP)
  Receive Date: 20240925
  Receipt Date: 20241203
  Transmission Date: 20250115
  Serious: Yes (Hospitalization)
  Sender: SHIONOGI
  Company Number: JP-shionogi-202400000148

PATIENT
  Age: 6 Decade
  Sex: Female
  Weight: 61.2 kg

DRUGS (11)
  1. CEFIDEROCOL [Suspect]
     Active Substance: CEFIDEROCOL
     Indication: Pseudomonas infection
     Route: 041
     Dates: start: 20240301, end: 20240416
  2. LEVETIRACETAM [Concomitant]
     Active Substance: LEVETIRACETAM
     Indication: Product used for unknown indication
     Dosage: SINCE BEFORE THE ADMINISTRATION OF FETROJA
     Route: 051
  3. ELIQUIS [Concomitant]
     Active Substance: APIXABAN
     Indication: Product used for unknown indication
     Dosage: SINCE BEFORE THE ADMINISTRATION OF FETROJA
     Route: 051
  4. POTASSIUM GLUCONATE [Concomitant]
     Active Substance: POTASSIUM GLUCONATE
     Indication: Product used for unknown indication
     Dosage: SINCE BEFORE THE ADMINISTRATION OF FETROJA
     Route: 051
  5. VONOPRAZAN FUMARATE [Concomitant]
     Active Substance: VONOPRAZAN FUMARATE
     Indication: Product used for unknown indication
     Dosage: SINCE BEFORE THE ADMINISTRATION OF FETROJA
     Route: 051
  6. BISOPROLOL FUMARATE [Concomitant]
     Active Substance: BISOPROLOL FUMARATE
     Indication: Product used for unknown indication
     Dosage: SINCE BEFORE THE ADMINISTRATION OF FETROJA
     Route: 051
  7. ENALAPRIL MALEATE [Concomitant]
     Active Substance: ENALAPRIL MALEATE
     Indication: Product used for unknown indication
     Dosage: SINCE BEFORE THE ADMINISTRATION OF FETROJA
     Route: 051
  8. DAPAGLIFLOZIN [Concomitant]
     Active Substance: DAPAGLIFLOZIN
     Indication: Product used for unknown indication
     Dosage: SINCE BEFORE THE ADMINISTRATION OF FETROJA
     Route: 051
  9. MIYA-BM [Concomitant]
     Active Substance: CLOSTRIDIUM BUTYRICUM SPORES STRAIN M-55
     Indication: Product used for unknown indication
     Dosage: SINCE BEFORE THE ADMINISTRATION OF FETROJA
     Route: 051
  10. URSODIOL [Concomitant]
     Active Substance: URSODIOL
     Indication: Product used for unknown indication
     Dosage: SINCE BEFORE THE ADMINISTRATION OF FETROJA
     Route: 051
  11. ALLELOCK [Concomitant]
     Active Substance: OLOPATADINE HYDROCHLORIDE
     Indication: Rash
     Route: 051
     Dates: start: 20240328, end: 20240416

REACTIONS (2)
  - Fungaemia [Recovering/Resolving]
  - Rash [Recovered/Resolved]

NARRATIVE: CASE EVENT DATE: 20240328
